FAERS Safety Report 7450842-3 (Version None)
Quarter: 2011Q2

REPORT INFORMATION
  Report Type: 
  Country: None (occurrence: None)
  Receive Date: 20110422
  Receipt Date: 20110412
  Transmission Date: 20111010
  Serious: Yes (Hospitalization)
  Sender: FDA-Public Use
  Company Number: WAES 1104USA01556

PATIENT
  Age: 66 Year
  Sex: Male

DRUGS (9)
  1. DECADRON [Suspect]
     Indication: PROSTATE CANCER
     Dosage: 8 MG, BID, PO
     Route: 048
     Dates: start: 20110116, end: 20110118
  2. LIDOCAINE HYDROCHLORIDE [Concomitant]
  3. ATACAND [Concomitant]
  4. BLINDED THERAPY [Suspect]
     Indication: PROSTATE CANCER
     Dosage: 100 MG DAILY, PO
     Route: 048
     Dates: start: 20110117
  5. PREDNISOLONE [Suspect]
     Indication: PROSTATE CANCER
     Dosage: 10 MG DAILY, PO
     Route: 048
     Dates: start: 20110117
  6. ISTIN [Concomitant]
  7. LIPITOR [Concomitant]
  8. DOCETAXEL [Suspect]
     Indication: PROSTATE CANCER
     Dosage: 75 MG DAILY, IV
     Route: 042
     Dates: start: 20110117
  9. MIDAZOLAM HCL [Concomitant]

REACTIONS (5)
  - ABDOMINAL PAIN UPPER [None]
  - REFLUX OESOPHAGITIS [None]
  - CHEST PAIN [None]
  - GASTRITIS [None]
  - GASTRIC ULCER [None]
